FAERS Safety Report 8004438-5 (Version None)
Quarter: 2011Q4

REPORT INFORMATION
  Report Type: 
  Country: None (occurrence: None)
  Receive Date: 20111221
  Receipt Date: 20111221
  Transmission Date: 20120403
  Serious: Yes (Other)
  Sender: FDA-Public Use
  Company Number: None

PATIENT
  Age: 71 Year
  Sex: Female
  Weight: 81.6475 kg

DRUGS (1)
  1. EDLUAR [Suspect]
     Indication: SEDATIVE THERAPY
     Dosage: 10MG TABLET (1) ONCE P.O (SUBL
     Route: 048
     Dates: start: 20111128

REACTIONS (5)
  - VOMITING [None]
  - DIPLOPIA [None]
  - LOSS OF CONSCIOUSNESS [None]
  - AGITATION [None]
  - MUSCULAR WEAKNESS [None]
